FAERS Safety Report 6170661-8 (Version None)
Quarter: 2009Q2

REPORT INFORMATION
  Report Type: 
  Country: None (occurrence: None)
  Receive Date: 20090428
  Receipt Date: 20090416
  Transmission Date: 20091009
  Serious: Yes (Other)
  Sender: FDA-Public Use
  Company Number: GB-PFIZER INC-2009199042

PATIENT

DRUGS (4)
  1. CHAMPIX [Suspect]
     Indication: SMOKING CESSATION THERAPY
     Dosage: 1 MG, 2X/DAY
     Route: 048
     Dates: start: 20090201
  2. COCAINE [Concomitant]
     Dosage: UNK
     Dates: start: 20081201
  3. EPILIM CHRONO [Concomitant]
     Indication: MOOD SWINGS
     Dosage: 1000 MG, 1X/DAY
     Route: 048
     Dates: start: 20070701
  4. SERTRALINE HYDROCHLORIDE [Concomitant]
     Indication: DEPRESSION
     Dosage: 50 MG, 1X/DAY
     Route: 048
     Dates: start: 20070101, end: 20090101

REACTIONS (3)
  - ELEVATED MOOD [None]
  - HYPOMANIA [None]
  - LIBIDO DECREASED [None]
